FAERS Safety Report 7215692-1 (Version None)
Quarter: 2011Q1

REPORT INFORMATION
  Report Type: 
  Country: None (occurrence: None)
  Receive Date: 20110104
  Receipt Date: 20110104
  Transmission Date: 20110831
  Serious: Yes (Other)
  Sender: FDA-Public Use
  Company Number: None

PATIENT
  Sex: Female
  Weight: 106 kg

DRUGS (1)
  1. DEFINITY [Suspect]
     Dosage: 5 ML ONCE IV BOLUS
     Route: 040
     Dates: start: 20101202, end: 20101202

REACTIONS (12)
  - STARING [None]
  - UNRESPONSIVE TO STIMULI [None]
  - NAUSEA [None]
  - HEART RATE INCREASED [None]
  - MUSCULOSKELETAL STIFFNESS [None]
  - PARAESTHESIA ORAL [None]
  - RESPIRATORY RATE DECREASED [None]
  - BLOOD PRESSURE DECREASED [None]
  - GLOSSODYNIA [None]
  - FEELING HOT [None]
  - TONIC CLONIC MOVEMENTS [None]
  - DREAMY STATE [None]
